FAERS Safety Report 8461845-4 (Version None)
Quarter: 2012Q2

REPORT INFORMATION
  Report Type: 
  Country: None (occurrence: None)
  Receive Date: 20120625
  Receipt Date: 20120618
  Transmission Date: 20120825
  Serious: Yes (Death, Hospitalization)
  Sender: FDA-Public Use
  Company Number: JP-ASTELLAS-2012JP005055

PATIENT
  Sex: Female
  Weight: 48 kg

DRUGS (12)
  1. PREDNISOLONE [Suspect]
     Dosage: 25 MG, UNKNOWN/D
     Route: 048
     Dates: end: 20120601
  2. PROGRAF [Suspect]
     Indication: COLITIS ULCERATIVE
     Dosage: 2.5 MG, BID
     Route: 048
     Dates: start: 20120307, end: 20120513
  3. PENTASA [Concomitant]
     Dosage: 1 G, UID/QD
     Route: 054
     Dates: start: 20090910, end: 20120514
  4. LIPITOR [Concomitant]
     Indication: HYPERLIPIDAEMIA
     Dosage: 10 MG, UID/QD
     Route: 048
     Dates: start: 20031031, end: 20120514
  5. EVISTA [Concomitant]
     Indication: OSTEOPOROSIS
     Dosage: 60 MG, UID/QD
     Route: 048
     Dates: start: 20050914, end: 20120514
  6. FAMOTIDINE [Concomitant]
     Indication: GASTRODUODENAL ULCER
     Dosage: 20 MG, UID/QD
     Route: 048
     Dates: end: 20120511
  7. LANSOPRAZOLE [Concomitant]
     Indication: GASTRODUODENAL ULCER
     Dosage: 30 MG, UID/QD
     Route: 048
     Dates: start: 20120512, end: 20120514
  8. PENTASA [Concomitant]
     Indication: COLITIS ULCERATIVE
     Dosage: 2 MG, BID
     Route: 048
     Dates: start: 20090413, end: 20120514
  9. REMICADE [Suspect]
     Indication: COLITIS ULCERATIVE
     Dosage: UNK
     Route: 054
     Dates: start: 20120214, end: 20120228
  10. BITSAN [Concomitant]
     Indication: GASTRODUODENAL ULCER
     Dosage: 1.4 G, TID
     Route: 048
     Dates: start: 20120512, end: 20120514
  11. PREDNISOLONE [Suspect]
     Indication: COLITIS ULCERATIVE
     Dosage: UNK
     Route: 048
     Dates: start: 20091222
  12. NORVASC [Concomitant]
     Indication: HYPERTENSION
     Dosage: 5 MG, UID/QD
     Route: 048
     Dates: start: 20110101, end: 20120514

REACTIONS (4)
  - PNEUMOCYSTIS JIROVECI PNEUMONIA [None]
  - BRONCHOPULMONARY ASPERGILLOSIS [None]
  - DRUG INEFFECTIVE [None]
  - CYTOMEGALOVIRUS ENTEROCOLITIS [None]
